FAERS Safety Report 8902183 (Version 1)
Quarter: 2012Q4

REPORT INFORMATION
  Report Type: 
  Country: MX (occurrence: MX)
  Receive Date: 20121112
  Receipt Date: 20121112
  Transmission Date: 20130627
  Serious: Yes (Hospitalization)
  Sender: FDA-Public Use
  Company Number: PHHY2012MX103953

PATIENT
  Age: 61 Year
  Sex: Female

DRUGS (3)
  1. TRILEPTAL [Suspect]
     Indication: EPILEPSY
     Dosage: 300 mg, QD
     Route: 048
     Dates: start: 20121020
  2. METFORMINE [Concomitant]
     Indication: DIABETES MELLITUS
     Dosage: 3 DF, daily
     Route: 048
  3. SELOKEN [Concomitant]
     Indication: HYPERTENSION

REACTIONS (2)
  - Intervertebral disc protrusion [Recovered/Resolved]
  - Pain [Recovered/Resolved]
